FAERS Safety Report 19919248 (Version 1)
Quarter: 2021Q4

REPORT INFORMATION
  Report Type: Report from Study
  Country: US (occurrence: US)
  Receive Date: 20211004
  Receipt Date: 20211004
  Transmission Date: 20220303
  Serious: No
  Sender: FDA-Public Use
  Company Number: US-NOVARTISTESTPH-NVSC2021US223389

PATIENT
  Age: 69 Year
  Sex: Male

DRUGS (2)
  1. ENTRESTO [Suspect]
     Active Substance: SACUBITRIL\VALSARTAN
     Indication: Product used for unknown indication
     Dosage: UNK UNK, QD(PATIENT UNCERTAIN OF MG)
     Route: 048
     Dates: start: 202103
  2. AMIODARONE [Suspect]
     Active Substance: AMIODARONE
     Indication: Product used for unknown indication
     Dosage: UNK, QD(1/2 TABLET)
     Route: 048
     Dates: start: 202103

REACTIONS (2)
  - Weight decreased [Recovering/Resolving]
  - Inappropriate schedule of product administration [Recovering/Resolving]

NARRATIVE: CASE EVENT DATE: 20210301
